FAERS Safety Report 6267580-5 (Version None)
Quarter: 2009Q3

REPORT INFORMATION
  Report Type: 
  Country: None (occurrence: None)
  Receive Date: 20090714
  Receipt Date: 20090630
  Transmission Date: 20100115
  Serious: Yes (Hospitalization, Other)
  Sender: FDA-Public Use
  Company Number: GB-PURDUE-USA-2009-0039031

PATIENT
  Age: 62 Year
  Sex: Female
  Weight: 163 kg

DRUGS (5)
  1. TRAMADOL HCL [Suspect]
     Indication: BACK PAIN
     Route: 048
  2. CLOZAPINE [Suspect]
     Indication: SCHIZOPHRENIA
     Dosage: 350 MG, DAILY
     Route: 048
     Dates: start: 20060629
  3. ATORVASTATIN CALCIUM [Concomitant]
     Indication: HYPERCHOLESTEROLAEMIA
     Dosage: 20 MG, DAILY
     Route: 048
  4. ISOSORBIDE MONONITRATE [Concomitant]
     Indication: ANGINA PECTORIS
     Dosage: 60 MG, DAILY
     Route: 048
  5. OMEPRAZOLE [Concomitant]
     Indication: DUODENAL ULCER
     Dosage: 50 MG, DAILY
     Route: 048

REACTIONS (11)
  - ANAEMIA [None]
  - BLOOD PRESSURE FLUCTUATION [None]
  - GASTROINTESTINAL HAEMORRHAGE [None]
  - IRON DEFICIENCY [None]
  - MEAN CELL HAEMOGLOBIN DECREASED [None]
  - MEAN CELL VOLUME DECREASED [None]
  - NEUTROPHIL COUNT INCREASED [None]
  - PLATELET COUNT DECREASED [None]
  - PLATELET COUNT INCREASED [None]
  - RED BLOOD CELL COUNT DECREASED [None]
  - WHITE BLOOD CELL COUNT INCREASED [None]
